FAERS Safety Report 15183680 (Version 4)
Quarter: 2018Q4

REPORT INFORMATION
  Report Type: Report from Study
  Country: US (occurrence: US)
  Receive Date: 20180723
  Receipt Date: 20181025
  Transmission Date: 20190204
  Serious: Yes (Hospitalization)
  Sender: FDA-Public Use
  Company Number: US-PFIZER INC-2018287650

PATIENT
  Age: 2 Year
  Sex: Female
  Weight: 13.1 kg

DRUGS (13)
  1. BENADRYL [Concomitant]
     Active Substance: DIPHENHYDRAMINE HYDROCHLORIDE
     Dosage: UNK
     Dates: start: 20180126, end: 20180619
  2. METHOTREXATE SODIUM. [Suspect]
     Active Substance: METHOTREXATE SODIUM
     Indication: ACUTE LYMPHOCYTIC LEUKAEMIA
     Dosage: 10 MG, ON DI DAY 1
     Route: 037
     Dates: start: 20180530
  3. DEXAMETHASONE. [Suspect]
     Active Substance: DEXAMETHASONE
     Dosage: 3 MG, BLD ON DI DAYS 1-4, 15-21
     Route: 048
     Dates: start: 20180620
  4. VINCRISTINE SULFATE. [Suspect]
     Active Substance: VINCRISTINE SULFATE
     Indication: ACUTE LYMPHOCYTIC LEUKAEMIA
     Dosage: 0.87 MG, ON DAYS 1, 8, AND 15
     Route: 042
     Dates: start: 20180530
  5. INCB018424 [Suspect]
     Active Substance: RUXOLITINIB
     Dosage: 25 MG, BID
     Route: 048
     Dates: start: 20180530, end: 20180620
  6. OXYCODONE [Concomitant]
     Active Substance: OXYCODONE
     Dosage: 1.3 MG, UNK
     Dates: start: 20180618
  7. PEGASPARGASE [Suspect]
     Active Substance: PEGASPARGASE
     Indication: ACUTE LYMPHOCYTIC LEUKAEMIA
     Dosage: 1450 UNITS, ON DI DAY 4
     Route: 042
     Dates: start: 20180602
  8. NYSTATIN. [Concomitant]
     Active Substance: NYSTATIN
     Dosage: 4 ML, UNK
     Dates: start: 20180618
  9. INCB018424 [Suspect]
     Active Substance: RUXOLITINIB
     Dosage: 20 MG, BID
     Route: 048
     Dates: start: 20180716
  10. MYLANTA [Concomitant]
     Active Substance: ALUMINUM HYDROXIDE\DIMETHICONE\MAGNESIUM HYDROXIDE
     Dosage: UNK
     Dates: start: 20180126, end: 20180619
  11. INCB018424 [Suspect]
     Active Substance: RUXOLITINIB
     Indication: ACUTE LYMPHOCYTIC LEUKAEMIA
     Dosage: 20 MG, BID
     Route: 048
     Dates: start: 20171127, end: 20180520
  12. DOXORUBICIN HCL [Suspect]
     Active Substance: DOXORUBICIN HYDROCHLORIDE
     Indication: ACUTE LYMPHOCYTIC LEUKAEMIA
     Dosage: 15 MG, ON DI DAYS 1, 8, AND 15
     Route: 042
     Dates: start: 20180530
  13. DEXAMETHASONE. [Suspect]
     Active Substance: DEXAMETHASONE
     Indication: ACUTE LYMPHOCYTIC LEUKAEMIA
     Dosage: 3 MG, BLD ON DI DAYS 1-4, 15-21
     Route: 048
     Dates: start: 20180530, end: 20180620

REACTIONS (3)
  - Vulval cellulitis [Recovered/Resolved]
  - Pseudomonal bacteraemia [Recovered/Resolved]
  - Stomatitis [Recovered/Resolved]

NARRATIVE: CASE EVENT DATE: 20180620
